FAERS Safety Report 13065767 (Version 2)
Quarter: 2017Q1

REPORT INFORMATION
  Report Type: Spontaneous
  Country: US (occurrence: US)
  Receive Date: 20161227
  Receipt Date: 20170125
  Transmission Date: 20170428
  Serious: Yes (Hospitalization)
  Sender: FDA-Public Use
  Company Number: US-VERTEX PHARMACEUTICALS-2016-007239

PATIENT
  Age: 25 Year
  Sex: Male

DRUGS (16)
  1. POTASSIUM CITRATE. [Concomitant]
     Active Substance: POTASSIUM CITRATE
     Dosage: 1 DF, TID
     Route: 048
  2. TOBRAMYCIN. [Concomitant]
     Active Substance: TOBRAMYCIN
     Dosage: ONE VIAL IN NEBULIZER, BID
     Route: 055
  3. AQUADEKS [Concomitant]
     Active Substance: MINERALS\VITAMINS
     Dosage: TWO TABLETS DAILY
     Route: 048
  4. ADVAIR HFA [Concomitant]
     Active Substance: FLUTICASONE PROPIONATE\SALMETEROL XINAFOATE
     Dosage: ONE INHALATION, BID
     Route: 055
  5. PROAIR HFA [Concomitant]
     Active Substance: ALBUTEROL SULFATE
     Dosage: INHALE TWO PUFFS EVERY 4 HOURS
  6. SCANDISHAKE MIX [Concomitant]
     Active Substance: DIETARY SUPPLEMENT
     Dosage: TAKE ONE PACKET, TWICE DAILY
     Route: 048
  7. VITAMIN D3 [Concomitant]
     Active Substance: CHOLECALCIFEROL
  8. ORKAMBI [Suspect]
     Active Substance: IVACAFTOR\LUMACAFTOR
     Indication: CYSTIC FIBROSIS
     Dosage: 2 DF (400-250MG), BID
     Route: 048
     Dates: start: 20150724
  9. CREON [Concomitant]
     Active Substance: PANCRELIPASE AMYLASE\PANCRELIPASE LIPASE\PANCRELIPASE PROTEASE
     Dosage: TAKE FIVE CAPSULES THREE TIMES DAILY WITH MEALS AND TWO TIME WITH SNACKS
     Route: 048
     Dates: start: 20100608
  10. HYPERSAL [Concomitant]
     Dosage: ONE VIAL, BID
     Route: 055
  11. CAYSTON [Concomitant]
     Active Substance: AZTREONAM
     Dosage: INHALE ONE VIAL, TID
     Route: 055
     Dates: start: 20120712
  12. PULMOZYME [Concomitant]
     Active Substance: DORNASE ALFA
     Dosage: ONE VIAL, TWICE DAILY
     Route: 048
     Dates: start: 20080930
  13. VITAMIN A [Concomitant]
     Active Substance: VITAMIN A
     Dosage: 2 DF, DAILY
     Route: 048
     Dates: start: 20150720
  14. ALBUTEROL SULFATE. [Concomitant]
     Active Substance: ALBUTEROL SULFATE
     Dosage: INHALE ONE VIAL. QID
     Route: 055
  15. ZITHROMAX [Concomitant]
     Active Substance: AZITHROMYCIN DIHYDRATE
     Dosage: 1 DF, MONDAY, WEDNESDAY AND FRIDAY
     Route: 048
     Dates: start: 20080930
  16. OMEPRAZOLE. [Concomitant]
     Active Substance: OMEPRAZOLE
     Dosage: ONE CAPSULE, DAILY
     Route: 048

REACTIONS (1)
  - Infective pulmonary exacerbation of cystic fibrosis [Recovered/Resolved]

NARRATIVE: CASE EVENT DATE: 20161219
